FAERS Safety Report 10385882 (Version 1)
Quarter: 2014Q3

REPORT INFORMATION
  Report Type: Spontaneous
  Country: US (occurrence: US)
  Receive Date: 20140814
  Receipt Date: 20140814
  Transmission Date: 20150326
  Serious: No
  Sender: FDA-Public Use
  Company Number: US-GALDERMA-US14001749

PATIENT
  Age: 50 Year
  Sex: Female

DRUGS (5)
  1. DIFFERIN [Suspect]
     Active Substance: ADAPALENE
     Indication: ACNE
     Dosage: 0.3%
     Route: 061
     Dates: start: 20140402, end: 20140502
  2. MARY KAY FOAMING CLEANSER [Concomitant]
     Indication: THERAPEUTIC SKIN CARE TOPICAL
     Route: 061
  3. MARY KAY NIGHT CREAM [Concomitant]
     Indication: DRY SKIN PROPHYLAXIS
     Route: 061
  4. MARY KAY MOISTURIZER WITH SUNSCREEN [Concomitant]
     Indication: PROPHYLAXIS AGAINST SOLAR RADIATION
     Route: 061
  5. DIFFERIN [Suspect]
     Active Substance: ADAPALENE
     Indication: DERMAL CYST

REACTIONS (5)
  - Expired product administered [Recovered/Resolved]
  - Acne [Recovering/Resolving]
  - Scar [Recovering/Resolving]
  - Inappropriate schedule of drug administration [Not Recovered/Not Resolved]
  - Drug ineffective [Recovering/Resolving]

NARRATIVE: CASE EVENT DATE: 2011
